FAERS Safety Report 21341238 (Version 2)
Quarter: 2023Q4

REPORT INFORMATION
  Report Type: Spontaneous
  Country: NZ (occurrence: NZ)
  Receive Date: 20220916
  Receipt Date: 20231229
  Transmission Date: 20240110
  Serious: Yes (Death, Hospitalization, Other)
  Sender: FDA-Public Use
  Company Number: NZ-ALKEM LABORATORIES LIMITED-CN-ALKEM-2022-09667

PATIENT
  Age: 20 Year
  Sex: Male

DRUGS (1)
  1. COLCHICINE [Suspect]
     Active Substance: COLCHICINE
     Indication: Product used for unknown indication
     Dosage: 40 MILLIGRAM
     Route: 065

REACTIONS (9)
  - Acute kidney injury [Fatal]
  - Acute respiratory failure [Fatal]
  - Myocardial injury [Fatal]
  - Coagulopathy [Fatal]
  - Completed suicide [Fatal]
  - Multiple organ dysfunction syndrome [Fatal]
  - Overdose [Unknown]
  - Abdominal pain [Unknown]
  - Diarrhoea [Unknown]
